FAERS Safety Report 12348030 (Version 7)
Quarter: 2016Q3

REPORT INFORMATION
  Report Type: Report from Study
  Country: US (occurrence: US)
  Receive Date: 20160509
  Receipt Date: 20160920
  Transmission Date: 20161109
  Serious: Yes (Other)
  Sender: FDA-Public Use
  Company Number: US-JNJFOC-20160410557

PATIENT
  Age: 88 Year
  Sex: Male
  Weight: 61.24 kg

DRUGS (9)
  1. XARELTO [Suspect]
     Active Substance: RIVAROXABAN
     Indication: ATRIAL FIBRILLATION
     Dosage: APPROXIMATELY ONE MONTH AGO
     Route: 048
     Dates: start: 201603
  2. XARELTO [Suspect]
     Active Substance: RIVAROXABAN
     Indication: THROMBOSIS
     Dosage: APPROXIMATELY ONE MONTH AGO
     Route: 048
     Dates: start: 201603
  3. XARELTO [Suspect]
     Active Substance: RIVAROXABAN
     Indication: CEREBROVASCULAR ACCIDENT PROPHYLAXIS
     Dosage: APPROXIMATELY ONE MONTH AGO
     Route: 048
     Dates: start: 201603
  4. HEPARIN [Suspect]
     Active Substance: HEPARIN SODIUM
     Indication: THROMBOSIS
     Route: 065
  5. METOPROLOL. [Concomitant]
     Active Substance: METOPROLOL
     Route: 065
  6. HYDROCHLOROTHIAZIDE. [Suspect]
     Active Substance: HYDROCHLOROTHIAZIDE
     Indication: PRODUCT USED FOR UNKNOWN INDICATION
     Route: 065
     Dates: end: 201604
  7. VITAMIN D3 [Concomitant]
     Active Substance: CHOLECALCIFEROL
     Indication: VITAMIN D DEFICIENCY
     Route: 048
     Dates: start: 2014
  8. SIMVASTATIN. [Concomitant]
     Active Substance: SIMVASTATIN
     Indication: BLOOD CHOLESTEROL ABNORMAL
     Route: 048
  9. AMLODIPINE [Concomitant]
     Active Substance: AMLODIPINE BESYLATE
     Indication: HYPERTENSION
     Dosage: FOR YEARS
     Route: 048

REACTIONS (7)
  - Asthenia [Recovering/Resolving]
  - Blood pressure decreased [Recovered/Resolved]
  - Bladder cancer [Unknown]
  - Dizziness [Recovered/Resolved]
  - Haematuria [Unknown]
  - Urinary tract infection fungal [Not Recovered/Not Resolved]
  - Syncope [Recovered/Resolved]

NARRATIVE: CASE EVENT DATE: 2016
